FAERS Safety Report 25843725 (Version 2)
Quarter: 2025Q4

REPORT INFORMATION
  Report Type: Spontaneous
  Country: US (occurrence: US)
  Receive Date: 20250924
  Receipt Date: 20251009
  Transmission Date: 20260118
  Serious: Yes (Hospitalization)
  Sender: JOHNSON AND JOHNSON
  Company Number: US-JNJFOC-20250919712

PATIENT
  Age: 46 Year
  Sex: Female
  Weight: 99 kg

DRUGS (10)
  1. OPSUMIT [Suspect]
     Active Substance: MACITENTAN
     Indication: Product used for unknown indication
     Route: 048
  2. REMODULIN [Suspect]
     Active Substance: TREPROSTINIL
     Indication: Pulmonary arterial hypertension
     Route: 058
     Dates: start: 2025
  3. REMODULIN [Suspect]
     Active Substance: TREPROSTINIL
     Dates: start: 2025
  4. REMODULIN [Suspect]
     Active Substance: TREPROSTINIL
     Route: 058
     Dates: start: 2025
  5. REMODULIN [Suspect]
     Active Substance: TREPROSTINIL
     Route: 058
     Dates: start: 2025
  6. REMODULIN [Suspect]
     Active Substance: TREPROSTINIL
     Route: 058
     Dates: start: 202506
  7. REMODULIN [Suspect]
     Active Substance: TREPROSTINIL
     Dosage: UNK (AT AN INFUSION RATE OF 36UL/HR USING 3 ML REMODULIN?2.5 MG, EVERY 70 HOURS
     Route: 058
     Dates: start: 2025
  8. REMODULIN [Suspect]
     Active Substance: TREPROSTINIL
     Route: 058
     Dates: start: 2025
  9. TRIAMCINOLONE [Concomitant]
     Active Substance: TRIAMCINOLONE
     Indication: Product used for unknown indication
  10. LIDOCAINE [Concomitant]
     Active Substance: LIDOCAINE
     Indication: Product used for unknown indication

REACTIONS (13)
  - Headache [Unknown]
  - Diarrhoea [Unknown]
  - Dyspnoea [Not Recovered/Not Resolved]
  - Nausea [Unknown]
  - Abdominal discomfort [Unknown]
  - Headache [Unknown]
  - Infusion site pruritus [Unknown]
  - Infusion site haemorrhage [Unknown]
  - Abdominal pain [Unknown]
  - Pyrexia [Unknown]
  - Infusion site pain [Unknown]
  - Nasopharyngitis [Not Recovered/Not Resolved]
  - Product dose omission issue [Unknown]

NARRATIVE: CASE EVENT DATE: 20250101
